FAERS Safety Report 5417389-7 (Version None)
Quarter: 2007Q3

REPORT INFORMATION
  Report Type: 
  Country: None (occurrence: None)
  Receive Date: 20070816
  Receipt Date: 20070806
  Transmission Date: 20080115
  Serious: Yes (Hospitalization)
  Sender: FDA-Public Use
  Company Number: GB-ABBOTT-07P-167-0367956-00

PATIENT
  Sex: Female
  Weight: 70 kg

DRUGS (5)
  1. HUMIRA [Suspect]
     Indication: DRUG USE FOR UNKNOWN INDICATION
     Route: 058
     Dates: end: 20070625
  2. AMITRIPTYLINE HCL [Concomitant]
     Indication: BRUXISM
     Route: 048
  3. ZOLMITRIPTAN [Concomitant]
     Indication: MIGRAINE
     Route: 048
  4. PIZOTIFEN [Concomitant]
     Indication: MIGRAINE
     Route: 048
  5. TRAVOPROST [Concomitant]
     Indication: GLAUCOMA

REACTIONS (8)
  - ANXIETY [None]
  - CHEST DISCOMFORT [None]
  - HEART RATE INCREASED [None]
  - PAIN IN EXTREMITY [None]
  - PALPITATIONS [None]
  - TACHYCARDIA [None]
  - TOOTH ABSCESS [None]
  - TOOTH INFECTION [None]
